FAERS Safety Report 9314774 (Version 2)
Quarter: 2013Q2

REPORT INFORMATION
  Report Type: Spontaneous
  Country: DE (occurrence: DE)
  Receive Date: 20130529
  Receipt Date: 20130617
  Transmission Date: 20140414
  Serious: Yes (Other)
  Sender: FDA-Public Use
  Company Number: DE-ROCHE-1229741

PATIENT
  Age: 68 Year
  Sex: Female
  Weight: 60 kg

DRUGS (5)
  1. ROACTEMRA [Suspect]
     Indication: POLYARTHRITIS
     Route: 042
     Dates: start: 20130506, end: 20130524
  2. METHOTREXATE [Concomitant]
     Route: 048
     Dates: start: 20110128
  3. PREDNISOLON [Concomitant]
     Route: 048
     Dates: start: 20110128
  4. LODOTRA [Concomitant]
     Route: 048
     Dates: start: 20121022
  5. FOLIC ACID [Concomitant]
     Route: 048
     Dates: start: 20121022

REACTIONS (1)
  - Pyoderma gangrenosum [Not Recovered/Not Resolved]
